FAERS Safety Report 6708455-4 (Version None)
Quarter: 2010Q2

REPORT INFORMATION
  Report Type: 
  Country: None (occurrence: None)
  Receive Date: 20100503
  Receipt Date: 20090501
  Transmission Date: 20101027
  Serious: No
  Sender: FDA-Public Use
  Company Number: US-ASTRAZENECA-2009UW11213

PATIENT
  Age: 23071 Day
  Sex: Female
  Weight: 61.2 kg

DRUGS (12)
  1. NEXIUM [Suspect]
     Route: 048
     Dates: end: 20090427
  2. NORVASC [Concomitant]
  3. IMDUR [Concomitant]
  4. FOSRENOL [Concomitant]
  5. ACTONEL [Concomitant]
  6. ALLOPURINOL [Concomitant]
  7. NEPHROVITE [Concomitant]
  8. DIOVAN [Concomitant]
  9. CLONIDINE [Concomitant]
  10. HECTOROL [Concomitant]
  11. CLORAZEPATE DIPOTASSIUM [Concomitant]
  12. NITROGLYCERIN [Concomitant]

REACTIONS (3)
  - ABDOMINAL PAIN UPPER [None]
  - GASTROOESOPHAGEAL REFLUX DISEASE [None]
  - ULCER [None]
